FAERS Safety Report 7298539-7 (Version None)
Quarter: 2011Q1

REPORT INFORMATION
  Report Type: 
  Country: None (occurrence: None)
  Receive Date: 20110217
  Receipt Date: 20110207
  Transmission Date: 20110831
  Serious: Yes (Death, Other)
  Sender: FDA-Public Use
  Company Number: JP-BAYER-201012466BYL

PATIENT
  Sex: Male
  Weight: 66 kg

DRUGS (3)
  1. NEXAVAR [Suspect]
     Indication: HEPATIC NEOPLASM MALIGNANT
     Dosage: 400 MG, BID
     Route: 048
     Dates: start: 20090702, end: 20090706
  2. ALOSENN [Concomitant]
     Dosage: SINCE BEFORE ADMINISTRATION
     Route: 048
  3. KADIAN [Concomitant]
     Dosage: SINCE BEFORE ADMINISTRATION
     Route: 048

REACTIONS (3)
  - DIZZINESS [None]
  - HEPATIC NEOPLASM MALIGNANT [None]
  - TRANSIENT ISCHAEMIC ATTACK [None]
